FAERS Safety Report 17992753 (Version 4)
Quarter: 2020Q3

REPORT INFORMATION
  Report Type: Report from Study
  Country: IT (occurrence: IT)
  Receive Date: 20200708
  Receipt Date: 20200901
  Transmission Date: 20201103
  Serious: Yes (Life-Threatening, Hospitalization, Other)
  Sender: FDA-Public Use
  Company Number: IT-AUROBINDO-AUR-APL-2020-034120

PATIENT
  Age: 83 Year
  Sex: Male

DRUGS (16)
  1. DOPAMINE [Suspect]
     Active Substance: DOPAMINE HYDROCHLORIDE
     Indication: CARDIOVASCULAR DISORDER
     Dosage: UNK
     Route: 042
  2. CLOPIDOGREL [Concomitant]
     Active Substance: CLOPIDOGREL BISULFATE
     Indication: CONGESTIVE CARDIOMYOPATHY
  3. FUROSEMIDE. [Concomitant]
     Active Substance: FUROSEMIDE
     Indication: CONGESTIVE CARDIOMYOPATHY
  4. BICALUTAMIDE. [Suspect]
     Active Substance: BICALUTAMIDE
     Indication: PROSTATE CANCER METASTATIC
     Dosage: 150 MILLIGRAM, ONCE A DAY (SEVERAL YEARS)
     Route: 065
  5. DOBUTAMINE [Suspect]
     Active Substance: DOBUTAMINE HYDROCHLORIDE
     Indication: CARDIOVASCULAR DISORDER
     Dosage: UNK
     Route: 042
  6. AMIODARONE [Suspect]
     Active Substance: AMIODARONE
     Indication: CORONARY ARTERY DISEASE
     Dosage: UNK
     Route: 065
  7. IVABRADINE [Concomitant]
     Active Substance: IVABRADINE
     Indication: CONGESTIVE CARDIOMYOPATHY
     Dosage: UNK
     Route: 065
  8. CLOPIDOGREL [Concomitant]
     Active Substance: CLOPIDOGREL BISULFATE
     Indication: CORONARY ARTERY DISEASE
     Dosage: UNK
     Route: 065
  9. ATORVASTATIN [Concomitant]
     Active Substance: ATORVASTATIN
     Indication: CONGESTIVE CARDIOMYOPATHY
     Dosage: UNK
     Route: 065
  10. ATORVASTATIN [Concomitant]
     Active Substance: ATORVASTATIN
     Indication: CORONARY ARTERY DISEASE
  11. ASPIRIN. [Concomitant]
     Active Substance: ASPIRIN
     Indication: CORONARY ARTERY DISEASE
  12. ALLOPURINOL. [Concomitant]
     Active Substance: ALLOPURINOL
     Indication: PRODUCT USED FOR UNKNOWN INDICATION
     Dosage: UNK
     Route: 065
  13. FUROSEMIDE. [Concomitant]
     Active Substance: FUROSEMIDE
     Indication: CORONARY ARTERY DISEASE
     Dosage: UNK
     Route: 065
  14. IVABRADINE [Concomitant]
     Active Substance: IVABRADINE
     Indication: CORONARY ARTERY DISEASE
  15. AMIODARONE [Suspect]
     Active Substance: AMIODARONE
     Indication: CONGESTIVE CARDIOMYOPATHY
  16. ASPIRIN. [Concomitant]
     Active Substance: ASPIRIN
     Indication: CONGESTIVE CARDIOMYOPATHY
     Dosage: UNK
     Route: 065

REACTIONS (14)
  - Cardiac arrest [Recovered/Resolved]
  - Ventricular arrhythmia [Recovered/Resolved]
  - Ventricular failure [Recovered/Resolved]
  - Hypocalcaemia [Recovered/Resolved]
  - Torsade de pointes [Recovered/Resolved]
  - Blood follicle stimulating hormone increased [Recovering/Resolving]
  - Ejection fraction decreased [Recovered/Resolved]
  - Electrocardiogram QT prolonged [Recovered/Resolved]
  - Hypogonadism [Recovering/Resolving]
  - Cardiac failure congestive [Recovered/Resolved]
  - Blood luteinising hormone increased [Recovering/Resolving]
  - Dyspnoea [Recovered/Resolved]
  - Ventricular fibrillation [Recovered/Resolved]
  - Urinary tract infection [Recovering/Resolving]
